FAERS Safety Report 24643922 (Version 6)
Quarter: 2025Q2

REPORT INFORMATION
  Report Type: Spontaneous
  Country: JP (occurrence: JP)
  Receive Date: 20241120
  Receipt Date: 20250520
  Transmission Date: 20250717
  Serious: Yes (Death, Hospitalization)
  Sender: EISAI
  Company Number: JP-Eisai-202409180_LEN_P_1

PATIENT
  Age: 86 Year
  Sex: Female

DRUGS (3)
  1. LENVATINIB [Suspect]
     Active Substance: LENVATINIB
     Indication: Anaplastic thyroid cancer
     Dates: start: 20240305, end: 20240411
  2. LENVATINIB [Suspect]
     Active Substance: LENVATINIB
     Dates: start: 20240424, end: 20240514
  3. LENVATINIB [Suspect]
     Active Substance: LENVATINIB
     Dates: start: 20240515, end: 20240520

REACTIONS (3)
  - Pneumonia aspiration [Fatal]
  - Cholecystitis [Recovered/Resolved]
  - Pneumonia [Recovering/Resolving]

NARRATIVE: CASE EVENT DATE: 20240409
